FAERS Safety Report 13495793 (Version 5)
Quarter: 2017Q3

REPORT INFORMATION
  Report Type: Report from Study
  Country: CN (occurrence: CN)
  Receive Date: 20170428
  Receipt Date: 20170703
  Transmission Date: 20171127
  Serious: Yes (Death, Hospitalization)
  Sender: FDA-Public Use
  Company Number: CN-ROCHE-1926050

PATIENT
  Age: 68 Year
  Sex: Male
  Weight: 82 kg

DRUGS (24)
  1. POLYENE PHOSPHATIDYLCHOLINE [Concomitant]
     Active Substance: PHOSPHOLIPID
     Route: 065
     Dates: start: 20170204, end: 20170225
  2. CODEINE PHOSPHATE [Concomitant]
     Active Substance: CODEINE PHOSPHATE
     Indication: PAIN
     Route: 065
     Dates: start: 20170324, end: 20170530
  3. POTASSIUM CHLORIDE. [Concomitant]
     Active Substance: POTASSIUM CHLORIDE
     Dosage: SUSTAINED RELEASE
     Route: 065
     Dates: start: 20170324, end: 20170530
  4. FLUCONAZOLE. [Concomitant]
     Active Substance: FLUCONAZOLE
     Dosage: DISPERSIBLE
     Route: 065
     Dates: start: 20170324, end: 20170530
  5. RECOMBINANT HUMAN INTERLEUKIN-11 [Concomitant]
     Route: 065
     Dates: start: 20170324, end: 20170530
  6. HUMAN ALBUMIN [Concomitant]
     Active Substance: ALBUMIN HUMAN
     Route: 065
     Dates: start: 20170324, end: 20170530
  7. GRANISETRON HYDROCHLORIDE. [Concomitant]
     Active Substance: GRANISETRON HYDROCHLORIDE
     Indication: VOMITING
     Route: 065
     Dates: start: 20170324, end: 20170530
  8. SULPERAZON (CHINA) [Concomitant]
     Route: 065
     Dates: start: 20170324, end: 20170530
  9. SODIUM BICARBONATE. [Concomitant]
     Active Substance: SODIUM BICARBONATE
     Route: 065
     Dates: start: 20170324, end: 20170530
  10. GLUCOSE [Concomitant]
     Active Substance: DEXTROSE
     Indication: VOMITING
     Route: 065
     Dates: start: 20170324, end: 20170530
  11. BICYCLOL [Concomitant]
     Active Substance: BICYCLOL
     Route: 065
     Dates: start: 20170204, end: 20170225
  12. CODEINE PHOSPHATE [Concomitant]
     Active Substance: CODEINE PHOSPHATE
     Dosage: COMPOUND
     Route: 048
  13. MOSAPRIDE CITRATE [Concomitant]
     Active Substance: MOSAPRIDE CITRATE
     Route: 065
     Dates: start: 20170324, end: 20170530
  14. MEGESTROL ACETATE. [Concomitant]
     Active Substance: MEGESTROL ACETATE
     Route: 065
     Dates: start: 20170324, end: 20170530
  15. MORPHINE HYDROCHLORIDE [Concomitant]
     Active Substance: MORPHINE HYDROCHLORIDE
     Indication: PAIN
     Route: 065
     Dates: start: 20170324, end: 20170530
  16. CEFOTIAM HYDROCHLORIDE [Concomitant]
     Active Substance: CEFOTIAM HYDROCHLORIDE
     Route: 065
     Dates: start: 20170324, end: 20170530
  17. POTASSIUM CHLORIDE. [Concomitant]
     Active Substance: POTASSIUM CHLORIDE
     Route: 065
     Dates: start: 20170324, end: 20170530
  18. PROMETHAZINE HYDROCHLORIDE. [Concomitant]
     Active Substance: PROMETHAZINE HYDROCHLORIDE
     Route: 065
     Dates: start: 20170324, end: 20170530
  19. FUROSEMIDE. [Concomitant]
     Active Substance: FUROSEMIDE
     Indication: POLYURIA
     Route: 065
     Dates: start: 20170324, end: 20170530
  20. THYMOSIN [Concomitant]
     Active Substance: THYMOSIN
     Route: 065
     Dates: start: 20170324, end: 20170530
  21. ATEZOLIZUMAB. [Suspect]
     Active Substance: ATEZOLIZUMAB
     Indication: NON-SMALL CELL LUNG CANCER
     Dosage: THE MOST RECENT DOSE OF ATEZOLIZUMAB 1200 MG PRIOR TO THE EVENT ONSET WAS ON 28/FEB/2017.
     Route: 042
     Dates: start: 20161222
  22. PANTOPRAZOLE SODIUM. [Concomitant]
     Active Substance: PANTOPRAZOLE SODIUM
     Route: 065
     Dates: start: 20170324, end: 20170530
  23. AMINOPHYLIN [Concomitant]
     Indication: ASTHMA
     Route: 065
     Dates: start: 20170324, end: 20170530
  24. DESLANOSIDE [Concomitant]
     Active Substance: DESLANOSIDE
     Indication: ARRHYTHMIA
     Route: 065
     Dates: start: 20170324, end: 20170530

REACTIONS (1)
  - Myelodysplastic syndrome [Fatal]

NARRATIVE: CASE EVENT DATE: 20170324
